FAERS Safety Report 8933270 (Version 1)
Quarter: 2012Q4

REPORT INFORMATION
  Report Type: 
  Country: NL (occurrence: NL)
  Receive Date: 20121129
  Receipt Date: 20121129
  Transmission Date: 20130627
  Serious: Yes (Hospitalization, Other)
  Sender: FDA-Public Use
  Company Number: PHHY2012NL091734

PATIENT
  Sex: Male

DRUGS (4)
  1. ZOMETA [Suspect]
     Indication: PROSTATE CANCER METASTATIC
     Dosage: 4 mg, per 21 days
     Route: 042
  2. ZOMETA [Suspect]
     Dosage: 4 mg, per 21 days
     Route: 042
     Dates: start: 20110516
  3. ZOMETA [Suspect]
     Dosage: 4 mg, per 21 days
     Route: 042
     Dates: start: 20120926
  4. ZOMETA [Suspect]
     Dosage: 4 mg, per 21 days
     Route: 042
     Dates: start: 20121015

REACTIONS (3)
  - Chest pain [Not Recovered/Not Resolved]
  - Back pain [Not Recovered/Not Resolved]
  - Terminal state [Unknown]
